FAERS Safety Report 9199802 (Version 2)
Quarter: 2013Q2

REPORT INFORMATION
  Report Type: Spontaneous
  Country: DE (occurrence: DE)
  Receive Date: 20130329
  Receipt Date: 20130419
  Transmission Date: 20140414
  Serious: Yes (Hospitalization, Other)
  Sender: FDA-Public Use
  Company Number: DE-ELI_LILLY_AND_COMPANY-DE201303006818

PATIENT
  Sex: Female

DRUGS (3)
  1. FORSTEO [Suspect]
     Indication: OSTEOPOROSIS
     Dosage: UNK, QD
     Route: 058
     Dates: start: 20130306, end: 20130313
  2. FORSTEO [Suspect]
     Dates: end: 20130403
  3. IBUPROFEN [Concomitant]

REACTIONS (4)
  - Back pain [Unknown]
  - Bone pain [Unknown]
  - Spinal fracture [Unknown]
  - Pain [Not Recovered/Not Resolved]
